FAERS Safety Report 24280238 (Version 1)
Quarter: 2024Q3

REPORT INFORMATION
  Report Type: Spontaneous
  Country: GR (occurrence: GR)
  Receive Date: 20240904
  Receipt Date: 20240904
  Transmission Date: 20241016
  Serious: Yes (Death, Hospitalization)
  Sender: MERCK
  Company Number: GR-009507513-2409GRC000601

PATIENT
  Sex: Male

DRUGS (1)
  1. KEYTRUDA [Suspect]
     Active Substance: PEMBROLIZUMAB
     Indication: Malignant melanoma
     Dosage: 2 DOSES

REACTIONS (2)
  - Myositis [Fatal]
  - Fatigue [Fatal]
